FAERS Safety Report 8555048 (Version 2)
Quarter: 2013Q3

REPORT INFORMATION
  Report Type: Spontaneous
  Country: US (occurrence: US)
  Receive Date: 20120510
  Receipt Date: 20130923
  Transmission Date: 20140515
  Serious: Yes (Other)
  Sender: FDA-Public Use
  Company Number: US-UCBSA-056726

PATIENT
  Sex: Female

DRUGS (3)
  1. VIMPAT [Suspect]
     Indication: CONVULSION
     Dosage: UNKNOWN DOSE
     Route: 048
     Dates: end: 2012
  2. VIMPAT [Suspect]
     Indication: CONVULSION
     Route: 048
     Dates: start: 2012
  3. ANTI-SEIZURE MEDICATION [Concomitant]

REACTIONS (1)
  - Convulsion [Not Recovered/Not Resolved]
